FAERS Safety Report 12543380 (Version 1)
Quarter: 2016Q3

REPORT INFORMATION
  Report Type: Spontaneous
  Country: US (occurrence: US)
  Receive Date: 20160711
  Receipt Date: 20160711
  Transmission Date: 20161109
  Serious: Yes (Other)
  Sender: FDA-Public Use
  Company Number: US-TEVA-583951USA

PATIENT
  Age: 40 Year
  Sex: Female

DRUGS (1)
  1. VENLAFAXINE [Suspect]
     Active Substance: VENLAFAXINE HYDROCHLORIDE
     Indication: DEPRESSION
     Dosage: 150 MILLIGRAM DAILY;
     Route: 065
     Dates: start: 20150715

REACTIONS (5)
  - Withdrawal syndrome [Unknown]
  - Dizziness [Unknown]
  - Agitation [Unknown]
  - Confusional state [Unknown]
  - Tinnitus [Unknown]

NARRATIVE: CASE EVENT DATE: 20150716
